FAERS Safety Report 7052829-1 (Version None)
Quarter: 2010Q4

REPORT INFORMATION
  Report Type: 
  Country: None (occurrence: None)
  Receive Date: 20101019
  Receipt Date: 20101008
  Transmission Date: 20110411
  Serious: Yes (Hospitalization, Other)
  Sender: FDA-Public Use
  Company Number: CA-JNJFOC-20101003413

PATIENT
  Sex: Female

DRUGS (7)
  1. REMICADE [Suspect]
     Indication: CROHN'S DISEASE
     Route: 042
  2. REMICADE [Suspect]
     Route: 042
  3. IMURAN [Concomitant]
  4. LOMOTIL [Concomitant]
  5. SANDOSTATIN [Concomitant]
  6. FOSAMAX [Concomitant]
  7. VIOKASE 16 [Concomitant]

REACTIONS (1)
  - LUNG NEOPLASM MALIGNANT [None]
